FAERS Safety Report 6344362-7 (Version None)
Quarter: 2009Q3

REPORT INFORMATION
  Report Type: 
  Country: None (occurrence: None)
  Receive Date: 20090903
  Receipt Date: 20090226
  Transmission Date: 20100115
  Serious: Yes (Death)
  Sender: FDA-Public Use
  Company Number: 010679385A

PATIENT
  Sex: Female

DRUGS (3)
  1. COLGATE TOTAL (R) ADVANCED CLEAN PLUS WHITENING PASTE [Suspect]
     Indication: GINGIVITIS
     Dosage: NI/ONCE/ORAL
     Route: 048
  2. A VARIETY OF UNSPECIFIED MEDICATIONS [Concomitant]
  3. HEART MEDICATIONS [Concomitant]

REACTIONS (3)
  - CHOKING [None]
  - COUGH [None]
  - SALIVARY HYPERSECRETION [None]
